FAERS Safety Report 9771976 (Version 1)
Quarter: 2013Q4

REPORT INFORMATION
  Report Type: Spontaneous
  Country: US (occurrence: US)
  Receive Date: 20131219
  Receipt Date: 20131219
  Transmission Date: 20140711
  Serious: Yes (Other)
  Sender: FDA-Public Use
  Company Number: US-JNJFOC-20131207405

PATIENT
  Age: 23 Year
  Sex: Female

DRUGS (2)
  1. REMICADE [Suspect]
     Indication: COLITIS ULCERATIVE
     Route: 042
  2. LIALDA [Concomitant]
     Route: 065
     Dates: start: 2012

REACTIONS (6)
  - Presyncope [Recovered/Resolved]
  - Neurological symptom [Recovered/Resolved]
  - Vision blurred [Recovered/Resolved]
  - Fatigue [Unknown]
  - Gastrointestinal pain [Recovering/Resolving]
  - Anxiety [Unknown]
